FAERS Safety Report 5194453-1 (Version None)
Quarter: 2006Q4

REPORT INFORMATION
  Report Type: 
  Country: None (occurrence: None)
  Receive Date: 20061222
  Receipt Date: 20061213
  Transmission Date: 20070319
  Serious: Yes (Hospitalization)
  Sender: FDA-Public Use
  Company Number: 150917USA

PATIENT
  Age: 48 Year
  Sex: Female

DRUGS (1)
  1. LISINOPRIL [Suspect]
     Indication: PROTEINURIA
     Dosage: 5 MG (5 MG, 1 IN 1 D)

REACTIONS (6)
  - ABDOMINAL TENDERNESS [None]
  - ANGIONEUROTIC OEDEMA [None]
  - ASCITES [None]
  - GASTROINTESTINAL DISORDER [None]
  - OBSTRUCTION GASTRIC [None]
  - OEDEMA MUCOSAL [None]
